FAERS Safety Report 8248658-3 (Version None)
Quarter: 2012Q1

REPORT INFORMATION
  Report Type: 
  Country: None (occurrence: None)
  Receive Date: 20120331
  Receipt Date: 20120316
  Transmission Date: 20120608
  Serious: Yes (Other)
  Sender: FDA-Public Use
  Company Number: IT-ACCORD-012903

PATIENT
  Sex: Female

DRUGS (2)
  1. FLUOROURACIL [Suspect]
  2. IRINOTECAN HCL [Suspect]

REACTIONS (2)
  - NAIL TOXICITY [None]
  - NEUTROPENIA [None]
